FAERS Safety Report 25585156 (Version 1)
Quarter: 2025Q3

REPORT INFORMATION
  Report Type: Spontaneous
  Country: CH (occurrence: CH)
  Receive Date: 20250721
  Receipt Date: 20250721
  Transmission Date: 20251021
  Serious: Yes (Hospitalization, Other)
  Sender: AIPING PHARMACEUTICAL
  Company Number: CH-AIPING-2025AILIT00100

PATIENT
  Age: 20 Year
  Sex: Male
  Weight: 66 kg

DRUGS (13)
  1. GUANFACINE HYDROCHLORIDE [Suspect]
     Active Substance: GUANFACINE HYDROCHLORIDE
     Indication: Autism spectrum disorder
     Route: 065
  2. GUANFACINE HYDROCHLORIDE [Suspect]
     Active Substance: GUANFACINE HYDROCHLORIDE
     Indication: Behaviour disorder
  3. LORAZEPAM [Suspect]
     Active Substance: LORAZEPAM
     Indication: Autism spectrum disorder
     Route: 065
  4. LORAZEPAM [Suspect]
     Active Substance: LORAZEPAM
     Indication: Behaviour disorder
  5. RISPERIDONE [Suspect]
     Active Substance: RISPERIDONE
     Indication: Antipsychotic therapy
     Route: 065
  6. LEVOMEPROMAZINE [Suspect]
     Active Substance: LEVOMEPROMAZINE
     Indication: Autism spectrum disorder
     Route: 065
  7. LEVOMEPROMAZINE [Suspect]
     Active Substance: LEVOMEPROMAZINE
     Indication: Behaviour disorder
  8. DIPHENHYDRAMINE [Suspect]
     Active Substance: DIPHENHYDRAMINE
     Indication: Autism spectrum disorder
     Route: 065
  9. DIPHENHYDRAMINE [Suspect]
     Active Substance: DIPHENHYDRAMINE
     Indication: Behaviour disorder
  10. BIPERIDEN [Suspect]
     Active Substance: BIPERIDEN
     Indication: Autism spectrum disorder
     Route: 065
  11. BIPERIDEN [Suspect]
     Active Substance: BIPERIDEN
     Indication: Behaviour disorder
  12. DOXYLAMINE [Suspect]
     Active Substance: DOXYLAMINE
     Indication: Autism spectrum disorder
     Route: 065
  13. DOXYLAMINE [Suspect]
     Active Substance: DOXYLAMINE
     Indication: Behaviour disorder

REACTIONS (1)
  - Urinary retention [Recovered/Resolved]
